FAERS Safety Report 25563467 (Version 1)
Quarter: 2025Q3

REPORT INFORMATION
  Report Type: Spontaneous
  Country: US (occurrence: US)
  Receive Date: 20250716
  Receipt Date: 20250716
  Transmission Date: 20251020
  Serious: No
  Sender: SUNOVION
  Company Number: US-SMPA-2025SPA008084AA

PATIENT

DRUGS (1)
  1. GEMTESA [Suspect]
     Active Substance: VIBEGRON
     Indication: Product used for unknown indication
     Dosage: UNK UNK, QOD
     Route: 048

REACTIONS (4)
  - Abdominal discomfort [Unknown]
  - Micturition urgency [Unknown]
  - Urinary retention [Unknown]
  - Inappropriate schedule of product administration [Unknown]
